FAERS Safety Report 15440070 (Version 1)
Quarter: 2018Q3

REPORT INFORMATION
  Report Type: Spontaneous
  Country: US (occurrence: US)
  Receive Date: 20180925
  Receipt Date: 20180925
  Transmission Date: 20181010
  Serious: Yes (Other)
  Sender: FDA-Public Use
  Company Number: None

PATIENT
  Age: 35 Year
  Sex: Female
  Weight: 129.6 kg

DRUGS (7)
  1. TIZANIDINE. [Concomitant]
     Active Substance: TIZANIDINE
  2. VITMIN D [Concomitant]
  3. LEVITHROXINE [Concomitant]
  4. ADVIL [Concomitant]
     Active Substance: IBUPROFEN
  5. AIMOVIG [Suspect]
     Active Substance: ERENUMAB-AOOE
     Indication: MIGRAINE
     Dosage: ?          QUANTITY:1 DF DOSAGE FORM;OTHER FREQUENCY:MONTHLY;?
     Route: 058
     Dates: start: 20180829
  6. ONZETRA [Concomitant]
     Active Substance: SUMATRIPTAN SUCCINATE
  7. VITAMIN B12 [Concomitant]
     Active Substance: CYANOCOBALAMIN

REACTIONS (2)
  - Vasculitis [None]
  - Colitis [None]

NARRATIVE: CASE EVENT DATE: 20180910
